FAERS Safety Report 9691901 (Version 36)
Quarter: 2016Q4

REPORT INFORMATION
  Report Type: Report from Study
  Country: CA (occurrence: CA)
  Receive Date: 20131117
  Receipt Date: 20161005
  Transmission Date: 20170207
  Serious: Yes (Hospitalization, Other)
  Sender: FDA-Public Use
  Company Number: CA-ROCHE-1113393

PATIENT
  Age: 66 Year
  Sex: Female
  Weight: 70 kg

DRUGS (20)
  1. ACTEMRA [Suspect]
     Active Substance: TOCILIZUMAB
     Route: 042
     Dates: start: 20160809
  2. METHOTREXATE. [Concomitant]
     Active Substance: METHOTREXATE
  3. ALENDRONATE [Concomitant]
     Active Substance: ALENDRONATE SODIUM
  4. BROMAZEPAM [Concomitant]
     Active Substance: BROMAZEPAM
  5. NEXIUM [Concomitant]
     Active Substance: ESOMEPRAZOLE MAGNESIUM
  6. SYNTHROID [Concomitant]
     Active Substance: LEVOTHYROXINE SODIUM
  7. PLAQUENIL [Concomitant]
     Active Substance: HYDROXYCHLOROQUINE SULFATE
  8. PROPRANOLOL [Concomitant]
     Active Substance: PROPRANOLOL\PROPRANOLOL HYDROCHLORIDE
  9. NAPROXEN. [Concomitant]
     Active Substance: NAPROXEN
  10. NORVASC [Concomitant]
     Active Substance: AMLODIPINE BESYLATE
  11. ACTEMRA [Suspect]
     Active Substance: TOCILIZUMAB
     Route: 042
     Dates: start: 20130507
  12. RALIVIA [Concomitant]
     Active Substance: TRAMADOL HYDROCHLORIDE
  13. SULFASALAZINE. [Concomitant]
     Active Substance: SULFASALAZINE
  14. LAMICTAL [Concomitant]
     Active Substance: LAMOTRIGINE
  15. PAXIL (CANADA) [Concomitant]
  16. LIPITOR [Concomitant]
     Active Substance: ATORVASTATIN CALCIUM
  17. PREDNISONE. [Concomitant]
     Active Substance: PREDNISONE
  18. ACTEMRA [Suspect]
     Active Substance: TOCILIZUMAB
     Indication: RHEUMATOID ARTHRITIS
     Route: 042
     Dates: start: 20111025
  19. FOLIC ACID. [Concomitant]
     Active Substance: FOLIC ACID
  20. ACETYLSALICYLIC ACID [Concomitant]
     Active Substance: ASPIRIN

REACTIONS (51)
  - Renal pain [Not Recovered/Not Resolved]
  - Infusion related reaction [Unknown]
  - Fatigue [Not Recovered/Not Resolved]
  - Arthralgia [Unknown]
  - Fall [Unknown]
  - Neck pain [Recovering/Resolving]
  - Weight fluctuation [Unknown]
  - Drug ineffective [Unknown]
  - Contusion [Not Recovered/Not Resolved]
  - Urinary tract infection [Unknown]
  - Anorectal disorder [Not Recovered/Not Resolved]
  - Nasopharyngitis [Not Recovered/Not Resolved]
  - Pyrexia [Unknown]
  - Oropharyngeal pain [Not Recovered/Not Resolved]
  - Rhinorrhoea [Unknown]
  - White blood cell count decreased [Not Recovered/Not Resolved]
  - Fatigue [Not Recovered/Not Resolved]
  - Gastroenteritis [Recovered/Resolved]
  - Anxiety [Unknown]
  - Depressed mood [Unknown]
  - Blood pressure increased [Unknown]
  - Weight decreased [Recovered/Resolved]
  - Musculoskeletal pain [Unknown]
  - Hypotension [Unknown]
  - Rib fracture [Unknown]
  - Insomnia [Unknown]
  - Arthralgia [Unknown]
  - Pain [Not Recovered/Not Resolved]
  - Diarrhoea [Recovered/Resolved]
  - Foot deformity [Unknown]
  - Pain [Not Recovered/Not Resolved]
  - Malaise [Unknown]
  - Rheumatoid arthritis [Unknown]
  - Weight increased [Unknown]
  - Tremor [Not Recovered/Not Resolved]
  - Dizziness [Unknown]
  - Rib fracture [Not Recovered/Not Resolved]
  - Dysuria [Not Recovered/Not Resolved]
  - Balance disorder [Unknown]
  - Sneezing [Not Recovered/Not Resolved]
  - Insomnia [Not Recovered/Not Resolved]
  - Condition aggravated [Unknown]
  - Phlebitis [Not Recovered/Not Resolved]
  - Musculoskeletal stiffness [Recovering/Resolving]
  - Urinary tract infection [Recovering/Resolving]
  - Fungal infection [Recovering/Resolving]
  - Neutropenia [Unknown]
  - Heart rate decreased [Not Recovered/Not Resolved]
  - Fall [Unknown]
  - Musculoskeletal pain [Unknown]
  - Urinary tract infection [Unknown]

NARRATIVE: CASE EVENT DATE: 20111025
